FAERS Safety Report 8004294-5 (Version None)
Quarter: 2011Q4

REPORT INFORMATION
  Report Type: 
  Country: None (occurrence: None)
  Receive Date: 20111223
  Receipt Date: 20111215
  Transmission Date: 20120403
  Serious: No
  Sender: FDA-Public Use
  Company Number: US-BIOGENIDEC-2011BI047890

PATIENT
  Sex: Female

DRUGS (1)
  1. TYSABRI [Suspect]
     Indication: MULTIPLE SCLEROSIS
     Route: 042
     Dates: start: 20080523, end: 20111025

REACTIONS (5)
  - PAIN IN EXTREMITY [None]
  - GAIT DISTURBANCE [None]
  - WEIGHT DECREASED [None]
  - FOOT AMPUTATION [None]
  - IMPAIRED DRIVING ABILITY [None]
